FAERS Safety Report 8817078 (Version 1)
Quarter: 2012Q4

REPORT INFORMATION
  Report Type: Spontaneous
  Country: US (occurrence: None)
  Receive Date: 20121003
  Receipt Date: 20121003
  Transmission Date: 20130627
  Serious: Yes (Hospitalization)
  Sender: FDA-Public Use
  Company Number: None

PATIENT
  Age: 40 Year
  Sex: Female
  Weight: 109.32 kg

DRUGS (1)
  1. LEVONORGESTREL/ETHINYL ESTRADIOL [Suspect]
     Indication: MENSTRUAL CYCLE MANAGEMENT
     Dosage: 1PILL ONCE A DAY PO
     Route: 048
     Dates: start: 20120719, end: 20120907

REACTIONS (1)
  - Intracranial venous sinus thrombosis [None]
